FAERS Safety Report 24655487 (Version 1)
Quarter: 2024Q4

REPORT INFORMATION
  Report Type: Spontaneous
  Country: US (occurrence: US)
  Receive Date: 20241123
  Receipt Date: 20241123
  Transmission Date: 20250115
  Serious: No
  Sender: ALKERMES
  Company Number: US-ALKERMES INC.-ALK-2024-002898

PATIENT
  Age: 31 Year
  Sex: Female

DRUGS (1)
  1. VIVITROL [Suspect]
     Active Substance: NALTREXONE
     Indication: Drug dependence
     Dosage: 380 MILLIGRAM, QMO
     Route: 030
     Dates: start: 20241004, end: 20241106

REACTIONS (4)
  - Blood alcohol increased [Unknown]
  - Alcohol test positive [Unknown]
  - Abnormal behaviour [Unknown]
  - Alcoholism [Unknown]

NARRATIVE: CASE EVENT DATE: 20240101
